FAERS Safety Report 19092112 (Version 1)
Quarter: 2021Q2

REPORT INFORMATION
  Report Type: Spontaneous
  Country: JP (occurrence: JP)
  Receive Date: 20210405
  Receipt Date: 20210405
  Transmission Date: 20210717
  Serious: Yes (Hospitalization)
  Sender: FDA-Public Use
  Company Number: JP-GLAXOSMITHKLINE-JP2021JPN071682

PATIENT
  Age: 48 Year
  Sex: Female
  Weight: 53 kg

DRUGS (9)
  1. CALONAL [Concomitant]
     Active Substance: ACETAMINOPHEN
     Dosage: UNK
  2. G?LASTA SUBCUTANEOUS INJECTION [Concomitant]
     Active Substance: PEGFILGRASTIM
     Dosage: UNK
  3. SAMTIREL [Suspect]
     Active Substance: ATOVAQUONE
     Indication: ANTIFUNGAL PROPHYLAXIS
     Dosage: 2 DF, QD
     Route: 048
     Dates: start: 20200521, end: 20200716
  4. NOVAMIN (JAPAN) [Concomitant]
     Dosage: UNK
  5. APREPITANT. [Concomitant]
     Active Substance: APREPITANT
     Dosage: UNK
  6. RITUXIMAB BS INTRAVENOUS INFUSION [Concomitant]
     Dosage: UNK
  7. D?CHLORPHENIRAMINE MALEATE [Concomitant]
     Active Substance: DEXCHLORPHENIRAMINE MALEATE
     Dosage: UNK
  8. FILGRASTIM BS INJECTION [Concomitant]
     Dosage: UNK
  9. BACTRAMIN COMBINATION TABLETS [Concomitant]
     Dosage: UNK

REACTIONS (1)
  - Neutrophil count decreased [Recovered/Resolved]

NARRATIVE: CASE EVENT DATE: 20200702
